FAERS Safety Report 9548331 (Version 1)
Quarter: 2013Q3

REPORT INFORMATION
  Report Type: Spontaneous
  Country: US (occurrence: None)
  Receive Date: 20130705
  Receipt Date: 20130705
  Transmission Date: 20140515
  Serious: Yes (Hospitalization)
  Sender: FDA-Public Use
  Company Number: RB-53679-2013

PATIENT
  Age: 50 Year
  Sex: Male

DRUGS (1)
  1. SUBOXONE 8 MG [Suspect]
     Indication: DRUG DEPENDENCE
     Dosage: 4 MG BID SUBOXONE FILM SUBLINGUAL
     Dates: start: 20130423, end: 20130423

REACTIONS (4)
  - Off label use [None]
  - Wrong technique in drug usage process [None]
  - Chest pain [None]
  - Blood pressure increased [None]
